FAERS Safety Report 23841180 (Version 5)
Quarter: 2025Q1

REPORT INFORMATION
  Report Type: Spontaneous
  Country: IT (occurrence: IT)
  Receive Date: 20240510
  Receipt Date: 20250311
  Transmission Date: 20250408
  Serious: Yes (Life-Threatening, Hospitalization, Other)
  Sender: AUROBINDO
  Company Number: IT-BRISTOL-MYERS SQUIBB COMPANY-2024-061749

PATIENT
  Age: 64 Year
  Sex: Male

DRUGS (3)
  1. AZACITIDINE [Suspect]
     Active Substance: AZACITIDINE
     Indication: Myelodysplastic syndrome
     Route: 065
     Dates: start: 202008
  2. ETANERCEPT [Suspect]
     Active Substance: ETANERCEPT
     Indication: Myelodysplastic syndrome
     Route: 065
     Dates: start: 201801
  3. ETANERCEPT [Suspect]
     Active Substance: ETANERCEPT
     Indication: Psoriatic arthropathy
     Route: 065
     Dates: start: 202008

REACTIONS (8)
  - Haemophagocytic lymphohistiocytosis [Recovered/Resolved]
  - Gastritis haemorrhagic [Recovered/Resolved]
  - Oesophagitis ulcerative [Recovered/Resolved]
  - Ulcerative duodenitis [Recovered/Resolved]
  - Ulcerative gastritis [Recovered/Resolved]
  - Oesophagitis haemorrhagic [Recovered/Resolved]
  - Oesophageal ulcer haemorrhage [Unknown]
  - Drug ineffective [Unknown]

NARRATIVE: CASE EVENT DATE: 20191101
